FAERS Safety Report 22132666 (Version 6)
Quarter: 2023Q4

REPORT INFORMATION
  Report Type: Spontaneous
  Country: US (occurrence: US)
  Receive Date: 20230323
  Receipt Date: 20231204
  Transmission Date: 20240109
  Serious: Yes (Other)
  Sender: FDA-Public Use
  Company Number: US-PFIZER INC-202300126942

PATIENT
  Age: 67 Year
  Sex: Female
  Weight: 77.11 kg

DRUGS (4)
  1. BRAFTOVI [Suspect]
     Active Substance: ENCORAFENIB
     Indication: Malignant melanoma
     Dosage: TAKES 6 PILLS A DAY
     Route: 048
     Dates: start: 20230322
  2. MEKTOVI [Suspect]
     Active Substance: BINIMETINIB
     Indication: Malignant melanoma
     Dosage: EVERY TWELVE HOURS/TAKES 3 PILLS OF MEKTOVI 9 AM AND THEN 3 PILLS AT 9 PM
     Dates: start: 20230322
  3. MEKTOVI [Suspect]
     Active Substance: BINIMETINIB
     Dosage: 15 MG, 1X/DAY
     Dates: start: 20230322
  4. MEKTOVI [Suspect]
     Active Substance: BINIMETINIB
     Dosage: 45 MG, 1X/DAY (TAKE 3)
     Route: 048

REACTIONS (4)
  - Angina pectoris [Unknown]
  - Off label use [Unknown]
  - Off label use [Unknown]
  - Malaise [Unknown]

NARRATIVE: CASE EVENT DATE: 20230101
